FAERS Safety Report 8845885 (Version 1)
Quarter: 2012Q4

REPORT INFORMATION
  Report Type: Report from Study
  Country: US (occurrence: US)
  Receive Date: 20121017
  Receipt Date: 20121017
  Transmission Date: 20130627
  Serious: Yes (Other)
  Sender: FDA-Public Use
  Company Number: US-ABBOTT-12P-163-0933773-00

PATIENT
  Age: 30 None
  Sex: Female
  Weight: 49.94 kg

DRUGS (8)
  1. HUMIRA 40 MG/0.8 ML PEN [Suspect]
     Indication: CROHN^S DISEASE
     Dates: start: 200807
  2. IMMODIUM [Suspect]
     Indication: CROHN^S DISEASE
  3. UNSPECIFIED INGREDIENT [Suspect]
     Indication: CROHN^S DISEASE
  4. UNSPECIFIED INGREDIENT [Suspect]
     Indication: CROHN^S DISEASE
  5. BENADRYL [Suspect]
     Indication: RASH
     Dates: start: 2010, end: 2010
  6. BENADRYL [Suspect]
     Indication: PRURITUS
  7. SEASONALE [Concomitant]
     Indication: CONTRACEPTION
  8. METHOTREXATE [Concomitant]
     Indication: CROHN^S DISEASE
     Dates: start: 201004

REACTIONS (14)
  - Ileostomy [Recovered/Resolved]
  - Crohn^s disease [Recovered/Resolved]
  - Injection site pain [Not Recovered/Not Resolved]
  - Injection site haemorrhage [Not Recovered/Not Resolved]
  - Injection site pain [Not Recovered/Not Resolved]
  - Injection site erythema [Not Recovered/Not Resolved]
  - Injection site pruritus [Not Recovered/Not Resolved]
  - Injection site papule [Unknown]
  - Rash [Not Recovered/Not Resolved]
  - Injection site rash [Not Recovered/Not Resolved]
  - Incorrect dose administered [Unknown]
  - Wrong technique in drug usage process [Unknown]
  - Drug ineffective [Unknown]
  - Fatigue [Unknown]
